FAERS Safety Report 16010523 (Version 1)
Quarter: 2019Q1

REPORT INFORMATION
  Report Type: Spontaneous
  Country: ES (occurrence: ES)
  Receive Date: 20190227
  Receipt Date: 20190227
  Transmission Date: 20190418
  Serious: Yes (Hospitalization)
  Sender: FDA-Public Use
  Company Number: ES-ROCHE-2272431

PATIENT
  Age: 81 Year
  Sex: Female

DRUGS (9)
  1. EUTIROX [Concomitant]
     Active Substance: LEVOTHYROXINE SODIUM
     Route: 048
  2. ELIQUIS [Concomitant]
     Active Substance: APIXABAN
     Route: 048
  3. FLUVASTATINA [Concomitant]
     Route: 048
  4. MABTHERA [Suspect]
     Active Substance: RITUXIMAB
     Dosage: RECEIVED 4 DOSES
     Route: 042
     Dates: start: 20161016, end: 20170220
  5. LOSARTAN. [Concomitant]
     Active Substance: LOSARTAN
     Route: 048
  6. FUROSEMIDA [Concomitant]
     Active Substance: FUROSEMIDE
     Route: 048
  7. MABTHERA [Suspect]
     Active Substance: RITUXIMAB
     Indication: MANTLE CELL LYMPHOMA STAGE IV
     Dosage: RECEIVED 3 DOSES
     Route: 042
     Dates: start: 20170801, end: 20180501
  8. DEZACOR [Concomitant]
     Active Substance: DEFLAZACORT
     Route: 048
  9. BENDAMUSTINA [Concomitant]
     Active Substance: BENDAMUSTINE
     Indication: MANTLE CELL LYMPHOMA STAGE IV
     Dosage: RECEIVED 4 DOSES
     Route: 042
     Dates: start: 20161016, end: 20170220

REACTIONS (1)
  - Stress cardiomyopathy [Recovered/Resolved]

NARRATIVE: CASE EVENT DATE: 20180618
